FAERS Safety Report 7902952-1 (Version None)
Quarter: 2011Q4

REPORT INFORMATION
  Report Type: 
  Country: None (occurrence: None)
  Receive Date: 20111103
  Receipt Date: 20111025
  Transmission Date: 20120403
  Serious: Yes (Other)
  Sender: FDA-Public Use
  Company Number: 2011SP050462

PATIENT
  Sex: Female

DRUGS (1)
  1. CERAZETTE (DESOGESTREL /00754001/) [Suspect]
     Indication: PRODUCT USED FOR UNKNOWN INDICATION
     Dosage: QD;PO
     Route: 048
     Dates: start: 20110801

REACTIONS (6)
  - BLOOD PRESSURE INCREASED [None]
  - RETCHING [None]
  - VOMITING [None]
  - ABDOMINAL PAIN [None]
  - SYNCOPE [None]
  - DIZZINESS [None]
